FAERS Safety Report 12115025 (Version 9)
Quarter: 2019Q4

REPORT INFORMATION
  Report Type: Report from Study
  Country: CA (occurrence: CA)
  Receive Date: 20160225
  Receipt Date: 20191008
  Transmission Date: 20200122
  Serious: Yes (Other)
  Sender: FDA-Public Use
  Company Number: CA-JNJFOC-20160222542

PATIENT
  Age: 57 Year
  Sex: Male
  Weight: 79.45 kg

DRUGS (5)
  1. REMICADE [Suspect]
     Active Substance: INFLIXIMAB
     Indication: COLITIS ULCERATIVE
     Route: 042
     Dates: start: 20070801
  2. REMICADE [Suspect]
     Active Substance: INFLIXIMAB
     Dosage: 5MG/KG
     Route: 042
     Dates: start: 20071115
  3. REMICADE [Suspect]
     Active Substance: INFLIXIMAB
     Route: 042
     Dates: start: 20161128
  4. REMICADE [Suspect]
     Active Substance: INFLIXIMAB
     Dosage: 73RD INFUSION
     Route: 042
     Dates: start: 20170109
  5. REMICADE [Suspect]
     Active Substance: INFLIXIMAB
     Dosage: SHORTEN INFUSION PROTOCOL
     Route: 042
     Dates: start: 20070809

REACTIONS (5)
  - General physical health deterioration [Recovering/Resolving]
  - Prostate cancer [Recovering/Resolving]
  - Colitis ulcerative [Recovering/Resolving]
  - Inappropriate schedule of product administration [Unknown]
  - Off label use [Unknown]

NARRATIVE: CASE EVENT DATE: 20070809
